FAERS Safety Report 17710314 (Version 1)
Quarter: 2020Q2

REPORT INFORMATION
  Report Type: Spontaneous
  Country: US (occurrence: US)
  Receive Date: 20200427
  Receipt Date: 20200427
  Transmission Date: 20200714
  Serious: No
  Sender: FDA-Public Use
  Company Number: US-LUPIN PHARMACEUTICALS INC.-2020-00929

PATIENT
  Age: 84 Year
  Sex: Female

DRUGS (1)
  1. TEMAZEPAM CAPSULES [Suspect]
     Active Substance: TEMAZEPAM
     Indication: PRODUCT USED FOR UNKNOWN INDICATION
     Dosage: UNK
     Route: 048

REACTIONS (3)
  - Product taste abnormal [Unknown]
  - Wrong technique in product usage process [Unknown]
  - Insomnia [Unknown]
